FAERS Safety Report 10265719 (Version 1)
Quarter: 2014Q2

REPORT INFORMATION
  Report Type: Spontaneous
  Country: GB (occurrence: GB)
  Receive Date: 20140627
  Receipt Date: 20140627
  Transmission Date: 20141212
  Serious: Yes (Life-Threatening, Hospitalization)
  Sender: FDA-Public Use
  Company Number: GB-B.I. PHARMACEUTICALS,INC./RIDGEFIELD-2014-BI-29098UK

PATIENT
  Age: 68 Year
  Sex: Male

DRUGS (7)
  1. LINAGLIPTIN [Suspect]
     Indication: PRODUCT USED FOR UNKNOWN INDICATION
     Dosage: 5 MG
     Route: 048
     Dates: end: 20140617
  2. ASPIRIN [Concomitant]
     Route: 065
  3. BACLOFEN [Concomitant]
     Route: 065
  4. CO-CODAMOL [Concomitant]
     Route: 065
  5. EPILIM CHRONO [Concomitant]
     Route: 065
  6. PERINDOPRIL [Concomitant]
     Route: 065
  7. SIMVASTATIN [Concomitant]
     Route: 065

REACTIONS (5)
  - Lactic acidosis [Not Recovered/Not Resolved]
  - Back pain [Unknown]
  - Pancreatitis acute [Not Recovered/Not Resolved]
  - Renal failure [Not Recovered/Not Resolved]
  - Malaise [Unknown]
